FAERS Safety Report 7085282-2 (Version None)
Quarter: 2010Q4

REPORT INFORMATION
  Report Type: 
  Country: None (occurrence: None)
  Receive Date: 20101105
  Receipt Date: 20101027
  Transmission Date: 20110411
  Serious: Yes (Other)
  Sender: FDA-Public Use
  Company Number: JP-PFIZER INC-2010133439

PATIENT
  Age: 66 Year
  Sex: Female

DRUGS (4)
  1. LYRICA [Suspect]
     Indication: POST HERPETIC NEURALGIA
     Dosage: 150 MG, DAY
     Route: 048
     Dates: start: 20101017, end: 20101001
  2. CALONAL [Concomitant]
     Dosage: 1200 MG/DAY
     Route: 048
     Dates: start: 20101014
  3. ACICLOVIR [Concomitant]
     Dosage: UNK
     Route: 041
     Dates: start: 20101015
  4. VOLTAREN [Concomitant]
     Dosage: 25 MG,/DAY
     Route: 054
     Dates: start: 20101016

REACTIONS (1)
  - NEUTROPHIL COUNT DECREASED [None]
